FAERS Safety Report 5337420-7 (Version None)
Quarter: 2007Q2

REPORT INFORMATION
  Report Type: 
  Country: None (occurrence: None)
  Receive Date: 20070309
  Receipt Date: 20060307
  Transmission Date: 20071010
  Serious: Yes (Other)
  Sender: FDA-Public Use
  Company Number: US200603001530

PATIENT
  Sex: Female

DRUGS (2)
  1. GEMZAR [Suspect]
     Dosage: SEE IMAGE
     Route: 042
     Dates: start: 20040101, end: 20050101
  2. GEMZAR [Suspect]
     Dosage: SEE IMAGE
     Route: 042
     Dates: start: 20050101

REACTIONS (1)
  - CARBOHYDRATE ANTIGEN 125 INCREASED [None]
